FAERS Safety Report 18495254 (Version 3)
Quarter: 2022Q1

REPORT INFORMATION
  Report Type: Spontaneous
  Country: IT (occurrence: IT)
  Receive Date: 20201112
  Receipt Date: 20220216
  Transmission Date: 20220423
  Serious: Yes (Death, Life-Threatening, Other)
  Sender: FDA-Public Use
  Company Number: IT-AMGEN-ITASP2020180354

PATIENT

DRUGS (6)
  1. PANITUMUMAB [Suspect]
     Active Substance: PANITUMUMAB
     Indication: Rectal cancer
     Dosage: UNK
     Route: 065
  2. BEVACIZUMAB [Suspect]
     Active Substance: BEVACIZUMAB
     Indication: Rectal cancer
     Dosage: UNK
     Route: 065
  3. LEUCOVORIN [Concomitant]
     Active Substance: LEUCOVORIN
     Indication: Rectal cancer
     Dosage: UNK
  4. FLUOROURACIL [Concomitant]
     Active Substance: FLUOROURACIL
     Indication: Rectal cancer
     Dosage: UNK
  5. IRINOTECAN [Concomitant]
     Active Substance: IRINOTECAN
     Indication: Rectal cancer
     Dosage: UNK
  6. OXALIPLATIN [Concomitant]
     Active Substance: OXALIPLATIN
     Indication: Rectal cancer
     Dosage: UNK
     Route: 065

REACTIONS (32)
  - Death [Fatal]
  - Rectal cancer recurrent [Fatal]
  - Neutropenia [Unknown]
  - Hyperkalaemia [Unknown]
  - Anaemia [Unknown]
  - Platelet count decreased [Unknown]
  - Nausea [Unknown]
  - Vomiting [Unknown]
  - Diarrhoea [Unknown]
  - Rectal cancer metastatic [Unknown]
  - Rectal haemorrhage [Unknown]
  - Metastases to bone [Unknown]
  - Anastomotic fistula [Unknown]
  - Intestinal obstruction [Unknown]
  - Constipation [Unknown]
  - Stomatitis [Unknown]
  - Exfoliative rash [Unknown]
  - Dysgeusia [Unknown]
  - Alanine aminotransferase increased [Unknown]
  - Aspartate aminotransferase increased [Unknown]
  - Neuralgia [Unknown]
  - Radiation skin injury [Unknown]
  - Proctitis [Unknown]
  - Dysuria [Unknown]
  - Pollakiuria [Unknown]
  - Haemoglobin abnormal [Unknown]
  - Palpitations [Unknown]
  - Abdominal pain [Unknown]
  - Infection [Unknown]
  - Abscess [Unknown]
  - Pyrexia [Unknown]
  - Fatigue [Unknown]
